FAERS Safety Report 17548877 (Version 1)
Quarter: 2020Q1

REPORT INFORMATION
  Report Type: Spontaneous
  Country: None (occurrence: US)
  Receive Date: 20200317
  Receipt Date: 20200317
  Transmission Date: 20200409
  Serious: No
  Sender: FDA-Public Use
  Company Number: US-ORION CORPORATION ORION PHARMA-ENT 2019-0076

PATIENT
  Age: 59 Year
  Sex: Male

DRUGS (8)
  1. CARBIDOPA. [Suspect]
     Active Substance: CARBIDOPA
     Indication: DEMENTIA WITH LEWY BODIES
     Route: 065
  2. VENLAFAXINE [Suspect]
     Active Substance: VENLAFAXINE HYDROCHLORIDE
     Indication: DEMENTIA WITH LEWY BODIES
     Route: 065
  3. ENTACAPONE. [Suspect]
     Active Substance: ENTACAPONE
     Indication: DEMENTIA WITH LEWY BODIES
     Route: 065
  4. CARBIDOPA W/LEVODOPA [Suspect]
     Active Substance: CARBIDOPA\LEVODOPA
     Indication: DEMENTIA WITH LEWY BODIES
     Dosage: STRENGTH: CARBIDOPA 100/ LEVODOPA 25 MG , ONE AND HALF TABLETS
     Route: 065
  5. CARBIDOPA W/LEVODOPA [Suspect]
     Active Substance: CARBIDOPA\LEVODOPA
     Dosage: STRENGTH: CARBIDOPA 200 / LEVODOPA 50 MG,  BED TIME
     Route: 065
  6. DROXIDOPA [Suspect]
     Active Substance: DROXIDOPA
     Route: 065
  7. DROXIDOPA [Suspect]
     Active Substance: DROXIDOPA
     Indication: ORTHOSTATIC HYPOTENSION
     Route: 065
  8. FLUDROCORTISONE [Suspect]
     Active Substance: FLUDROCORTISONE
     Indication: PRODUCT USED FOR UNKNOWN INDICATION
     Route: 065

REACTIONS (4)
  - Agitation [Recovered/Resolved]
  - Irritability [Recovered/Resolved]
  - Feeling abnormal [Recovered/Resolved]
  - Product use in unapproved indication [Unknown]
